FAERS Safety Report 8451386 (Version 4)
Quarter: 2024Q2

REPORT INFORMATION
  Report Type: Report from Study
  Country: CA (occurrence: CA)
  Receive Date: 20120309
  Receipt Date: 20240625
  Transmission Date: 20240715
  Serious: Yes (Hospitalization)
  Sender: FDA-Public Use
  Company Number: CA-JNJFOC-20120300694

PATIENT
  Age: 53 Year
  Sex: Male
  Weight: 82.1 kg

DRUGS (4)
  1. STELARA [Suspect]
     Active Substance: USTEKINUMAB
     Indication: Psoriasis
     Route: 058
     Dates: start: 20090904, end: 20140826
  2. STELARA [Suspect]
     Active Substance: USTEKINUMAB
     Route: 058
     Dates: start: 20070627, end: 20080331
  3. STELARA [Suspect]
     Active Substance: USTEKINUMAB
     Route: 058
     Dates: start: 20141114, end: 20170616
  4. TACLONEX [Concomitant]
     Active Substance: BETAMETHASONE DIPROPIONATE\CALCIPOTRIENE\CALCIPOTRIENE HYDRATE
     Indication: Product used for unknown indication

REACTIONS (5)
  - Pneumonia pneumococcal [Recovered/Resolved]
  - Sepsis [Recovered/Resolved]
  - Urinary tract infection [Unknown]
  - Diarrhoea [Unknown]
  - Haematuria [Unknown]

NARRATIVE: CASE EVENT DATE: 20120201
